FAERS Safety Report 13391638 (Version 1)
Quarter: 2017Q1

REPORT INFORMATION
  Report Type: Spontaneous
  Country: US (occurrence: US)
  Receive Date: 20170331
  Receipt Date: 20170331
  Transmission Date: 20170429
  Serious: No
  Sender: FDA-Public Use
  Company Number: US-MYLANLABS-2016M1014391

PATIENT
  Age: 49 Year
  Sex: Male
  Weight: 99.77 kg

DRUGS (3)
  1. CHOLESTEROL MEDICATIONS [Concomitant]
     Active Substance: UNSPECIFIED INGREDIENT
  2. FENTANYL TRANSDERMAL SYSTEM [Suspect]
     Active Substance: FENTANYL
     Indication: PAIN
     Dosage: 75 ?G/ QH, CHANGES Q72H
     Route: 062
     Dates: start: 2015
  3. BLOOD PRESSURE MEDICATIONS [Concomitant]
     Active Substance: UNSPECIFIED INGREDIENT
     Dosage: UNK

REACTIONS (2)
  - Drug screen negative [Not Recovered/Not Resolved]
  - Drug ineffective [Not Recovered/Not Resolved]

NARRATIVE: CASE EVENT DATE: 201603
